FAERS Safety Report 13866843 (Version 3)
Quarter: 2017Q4

REPORT INFORMATION
  Report Type: Spontaneous
  Country: BR (occurrence: BR)
  Receive Date: 20170814
  Receipt Date: 20171206
  Transmission Date: 20180320
  Serious: Yes (Other)
  Sender: FDA-Public Use
  Company Number: BR-ELI_LILLY_AND_COMPANY-BR201708004251

PATIENT
  Age: 51 Year
  Sex: Female
  Weight: 68 kg

DRUGS (10)
  1. ATACAND COMB [Concomitant]
     Active Substance: CANDESARTAN CILEXETIL\FELODIPINE
     Indication: PRODUCT USED FOR UNKNOWN INDICATION
     Dosage: 1 DF, UNK
     Route: 048
  2. DILTIAZEM HYDROCHLORIDE. [Concomitant]
     Active Substance: DILTIAZEM HYDROCHLORIDE
     Indication: PRODUCT USED FOR UNKNOWN INDICATION
     Dosage: 60 UNK, QOD
  3. AAS [Suspect]
     Active Substance: ASPIRIN
     Dosage: UNK UNK, UNKNOWN
     Route: 048
     Dates: start: 201404, end: 2017
  4. MONOCORDIL [Concomitant]
     Active Substance: ISOSORBIDE MONONITRATE
     Indication: PRODUCT USED FOR UNKNOWN INDICATION
     Dosage: 20 MG, UNK
  5. ROSULIB [Concomitant]
     Active Substance: ROSUVASTATIN
     Indication: PRODUCT USED FOR UNKNOWN INDICATION
     Dosage: UNK
  6. EFFIENT [Suspect]
     Active Substance: PRASUGREL HYDROCHLORIDE
     Indication: VASCULAR GRAFT
     Dosage: 10 MG, DAILY
     Route: 048
     Dates: start: 20130301
  7. EFFIENT [Suspect]
     Active Substance: PRASUGREL HYDROCHLORIDE
     Dosage: 10 MG, QOD
     Route: 048
     Dates: start: 201710
  8. AAS [Suspect]
     Active Substance: ASPIRIN
     Dosage: UNK, UNKNOWN
  9. CONCOR [Concomitant]
     Active Substance: BISOPROLOL FUMARATE
     Indication: PRODUCT USED FOR UNKNOWN INDICATION
     Dosage: 2.5 MG, UNK
  10. AAS [Suspect]
     Active Substance: ASPIRIN
     Indication: PRODUCT USED FOR UNKNOWN INDICATION
     Dosage: UNK UNK, UNKNOWN
     Route: 048
     Dates: start: 201404

REACTIONS (9)
  - Underdose [Not Recovered/Not Resolved]
  - Coronary artery occlusion [Unknown]
  - Sinusitis [Recovered/Resolved]
  - Arrhythmia [Recovered/Resolved]
  - Haematoma [Recovered/Resolved]
  - Off label use [Recovered/Resolved]
  - Ventricular hypertrophy [Not Recovered/Not Resolved]
  - Haematoma [Recovered/Resolved]
  - Vascular graft occlusion [Recovering/Resolving]

NARRATIVE: CASE EVENT DATE: 20130301
